FAERS Safety Report 19390641 (Version 2)
Quarter: 2021Q3

REPORT INFORMATION
  Report Type: Spontaneous
  Country: ER (occurrence: ER)
  Receive Date: 20210608
  Receipt Date: 20210713
  Transmission Date: 20211014
  Serious: Yes (Hospitalization, Other)
  Sender: FDA-Public Use
  Company Number: NVSC2021ER128907

PATIENT
  Age: 25 Year
  Sex: Male

DRUGS (1)
  1. DICLOFENAC [Suspect]
     Active Substance: DICLOFENAC
     Indication: PYREXIA
     Dosage: UNK (INTRAGLUTEAL)
     Route: 030
     Dates: start: 2018

REACTIONS (43)
  - Infection [Recovered/Resolved]
  - Condition aggravated [Recovered/Resolved]
  - Erythema [Recovered/Resolved]
  - Dizziness [Recovered/Resolved]
  - Asthenia [Recovered/Resolved]
  - Hyperhidrosis [Recovered/Resolved]
  - Anxiety [Recovered/Resolved]
  - Depressed level of consciousness [Recovered/Resolved]
  - Urine output decreased [Recovered/Resolved]
  - Hepatic function abnormal [Recovered/Resolved]
  - Hypertriglyceridaemia [Recovered/Resolved]
  - Chromaturia [Recovered/Resolved]
  - Rhabdomyolysis [Recovered/Resolved]
  - Joint swelling [Recovered/Resolved]
  - Arthralgia [Recovered/Resolved]
  - Skin discolouration [Recovered/Resolved]
  - Cellulitis [Recovered/Resolved]
  - Liver disorder [Recovered/Resolved]
  - Haemorrhage [Recovered/Resolved]
  - Azotaemia [Unknown]
  - Abdominal pain [Unknown]
  - Injection site necrosis [Recovered/Resolved]
  - Haematuria [Recovered/Resolved]
  - Somnolence [Recovered/Resolved]
  - Dyspnoea [Recovered/Resolved]
  - Pyrexia [Unknown]
  - Nausea [Unknown]
  - Vomiting [Recovered/Resolved]
  - Acute kidney injury [Recovered/Resolved]
  - Uridrosis [Unknown]
  - Decreased appetite [Unknown]
  - Tissue injury [Recovered/Resolved]
  - Immobilisation prolonged [Recovered/Resolved]
  - Anaemia [Recovered/Resolved]
  - Renal impairment [Recovered/Resolved]
  - Cardiac murmur [Recovered/Resolved]
  - Leukocytosis [Recovered/Resolved]
  - Confusional state [Recovered/Resolved]
  - Swelling [Recovered/Resolved]
  - Peripheral swelling [Recovered/Resolved]
  - Pain in extremity [Recovered/Resolved]
  - Blister [Recovered/Resolved]
  - Renal tubular necrosis [Recovered/Resolved]

NARRATIVE: CASE EVENT DATE: 201812
